FAERS Safety Report 11737943 (Version 1)
Quarter: 2015Q4

REPORT INFORMATION
  Report Type: Spontaneous
  Country: US (occurrence: US)
  Receive Date: 20151110
  Receipt Date: 20151110
  Transmission Date: 20160304
  Serious: No
  Sender: FDA-Public Use
  Company Number: US-ELI_LILLY_AND_COMPANY-US201207005561

PATIENT
  Sex: Female

DRUGS (2)
  1. FORTEO [Suspect]
     Active Substance: TERIPARATIDE
     Indication: OSTEOPOROSIS
     Dosage: UNK, QD
  2. FORTEO [Suspect]
     Active Substance: TERIPARATIDE
     Dosage: UNK, QD

REACTIONS (11)
  - Thyroid function test abnormal [Unknown]
  - Malaise [Unknown]
  - Fatigue [Unknown]
  - Hypotension [Unknown]
  - Muscle spasms [Unknown]
  - Syncope [Unknown]
  - Laboratory test abnormal [Unknown]
  - Pain in extremity [Unknown]
  - Nausea [Unknown]
  - Muscle contractions involuntary [Unknown]
  - Presyncope [Unknown]
